FAERS Safety Report 20480502 (Version 1)
Quarter: 2022Q1

REPORT INFORMATION
  Report Type: Spontaneous
  Country: US (occurrence: US)
  Receive Date: 20220216
  Receipt Date: 20220216
  Transmission Date: 20220423
  Serious: No
  Sender: FDA-Public Use
  Company Number: MIQ-05062021-450(V1)

PATIENT
  Age: 53 Year
  Sex: Female
  Weight: 170 kg

DRUGS (19)
  1. BIVIGAM [Suspect]
     Active Substance: HUMAN IMMUNOGLOBULIN G
     Indication: Immune system disorder
     Dosage: 60 GRAM Q 4 WEEKS
     Dates: start: 20210408
  2. BIVIGAM [Suspect]
     Active Substance: HUMAN IMMUNOGLOBULIN G
     Indication: Immunodeficiency common variable
     Dosage: 60 GRAM Q 4 WEEKS
     Dates: start: 20210506
  3. BIVIGAM [Suspect]
     Active Substance: HUMAN IMMUNOGLOBULIN G
     Dosage: 60 GRAM Q 4 WEEKS
     Dates: start: 20210603, end: 20210603
  4. BENADRYL                           /00000402/ [Concomitant]
     Indication: Product used for unknown indication
     Dosage: UNK
  5. TYLENOL                            /00020001/ [Concomitant]
     Indication: Product used for unknown indication
     Dosage: UNK
  6. IBUPROFEN                          /00109205/ [Concomitant]
     Indication: Product used for unknown indication
     Dosage: UNK
  7. LEXAPRO [Concomitant]
     Active Substance: ESCITALOPRAM OXALATE
     Indication: Product used for unknown indication
     Dosage: UNK
  8. EPIPEN [Concomitant]
     Active Substance: EPINEPHRINE
     Indication: Product used for unknown indication
     Dosage: UNK
  9. B-COMPLEX                          /00003501/ [Concomitant]
     Indication: Product used for unknown indication
     Dosage: UNK
  10. PRIVIGEN [Concomitant]
     Active Substance: HUMAN IMMUNOGLOBULIN G
     Indication: Product used for unknown indication
     Dosage: UNK
  11. PROBIOTIC COMPLEX [Concomitant]
     Indication: Product used for unknown indication
     Dosage: UNK
  12. SYMBICORT [Concomitant]
     Active Substance: BUDESONIDE\FORMOTEROL FUMARATE DIHYDRATE
     Indication: Product used for unknown indication
     Dosage: UNK
  13. AZITHROMYCIN                       /00944302/ [Concomitant]
     Indication: Product used for unknown indication
     Dosage: UNK
  14. PROAIR                             /00139502/ [Concomitant]
     Indication: Product used for unknown indication
     Dosage: UNK
  15. ALBUTEROL SULFATE [Concomitant]
     Active Substance: ALBUTEROL SULFATE
     Indication: Product used for unknown indication
     Dosage: UNK
  16. DIFLUCAN [Concomitant]
     Active Substance: FLUCONAZOLE
     Indication: Product used for unknown indication
     Dosage: UNK
  17. VITAMIN D3 [Concomitant]
     Active Substance: CHOLECALCIFEROL
     Indication: Product used for unknown indication
     Dosage: UNK
  18. ZINC                               /00156502/ [Concomitant]
     Indication: Product used for unknown indication
     Dosage: UNK
  19. FENOFIBRATE [Concomitant]
     Active Substance: FENOFIBRATE
     Indication: Product used for unknown indication
     Dosage: UNK

REACTIONS (6)
  - Throat irritation [Recovered/Resolved]
  - Gastrointestinal disorder [Recovered/Resolved]
  - Headache [Recovered/Resolved]
  - Fatigue [Recovered/Resolved]
  - Abdominal pain upper [Unknown]
  - Diarrhoea [Recovered/Resolved]

NARRATIVE: CASE EVENT DATE: 20210408
